FAERS Safety Report 6866391-7 (Version None)
Quarter: 2010Q3

REPORT INFORMATION
  Report Type: 
  Country: None (occurrence: None)
  Receive Date: 20100722
  Receipt Date: 20100715
  Transmission Date: 20110219
  Serious: Yes (Hospitalization)
  Sender: FDA-Public Use
  Company Number: PHHY2010JP44815

PATIENT
  Age: 59 Year
  Sex: Female

DRUGS (7)
  1. COMTAN [Suspect]
     Indication: PARKINSON'S DISEASE
     Dosage: UNK
  2. COMTAN [Suspect]
     Dosage: UNK
  3. CARBIDOPA AND LEVODOPA [Concomitant]
     Indication: PARKINSON'S DISEASE
     Dosage: 250 MG/DAY (5 DIVIDED DOSES)
  4. PRAMIVERINE HYDROCHLORIDE [Concomitant]
     Indication: PARKINSON'S DISEASE
     Dosage: UNK
  5. PRAMIPEXOLE DIHYDROCHLORIDE [Concomitant]
     Indication: PARKINSON'S DISEASE
     Dosage: UNK
  6. PRAMIPEXOLE DIHYDROCHLORIDE [Concomitant]
     Dosage: UNK
  7. VITAMIN C [Concomitant]
     Dosage: UNK

REACTIONS (5)
  - ACTIVITIES OF DAILY LIVING IMPAIRED [None]
  - DRUG EFFECT DECREASED [None]
  - DYSKINESIA [None]
  - ON AND OFF PHENOMENON [None]
  - PARKINSON'S DISEASE [None]
